APPROVED DRUG PRODUCT: XULANE
Active Ingredient: ETHINYL ESTRADIOL; NORELGESTROMIN
Strength: 0.035MG/24HR;0.15MG/24HR
Dosage Form/Route: FILM, EXTENDED RELEASE;TRANSDERMAL
Application: A200910 | Product #001 | TE Code: AB
Applicant: MYLAN TECHNOLOGIES INC
Approved: Apr 16, 2014 | RLD: No | RS: Yes | Type: RX